FAERS Safety Report 18131715 (Version 1)
Quarter: 2020Q3

REPORT INFORMATION
  Report Type: Spontaneous
  Country: CA (occurrence: CA)
  Receive Date: 20200810
  Receipt Date: 20200810
  Transmission Date: 20201103
  Serious: Yes (Other)
  Sender: FDA-Public Use
  Company Number: CA-BAXTER-2020BAX015699

PATIENT
  Age: 47 Year
  Sex: Male

DRUGS (26)
  1. DEXAMETHASONE. [Suspect]
     Active Substance: DEXAMETHASONE
     Indication: GLOMERULONEPHRITIS MEMBRANOPROLIFERATIVE
     Dosage: DOSAGE FORM: UNKNOWN
     Route: 065
  2. RITUXIMAB. [Suspect]
     Active Substance: RITUXIMAB
     Dosage: DOSAGE FORM: UNKNOWN
     Route: 042
  3. RITUXIMAB. [Concomitant]
     Active Substance: RITUXIMAB
     Indication: CRYOGLOBULINAEMIA
  4. AZATHIOPRINE. [Concomitant]
     Active Substance: AZATHIOPRINE
     Indication: CRYOGLOBULINAEMIA
     Dosage: DOSAGE FORM: UNKNOWN
     Route: 065
  5. RITUXIMAB. [Suspect]
     Active Substance: RITUXIMAB
     Dosage: DOSAGE FORM: UNKNOWN
     Route: 042
  6. BENDAMUSTINE HYDROCHLORIDE. [Suspect]
     Active Substance: BENDAMUSTINE HYDROCHLORIDE
     Indication: GLOMERULONEPHRITIS MEMBRANOPROLIFERATIVE
     Route: 042
  7. BENDAMUSTINE HYDROCHLORIDE. [Suspect]
     Active Substance: BENDAMUSTINE HYDROCHLORIDE
     Indication: CRYOGLOBULINAEMIA
     Route: 065
  8. RITUXIMAB. [Concomitant]
     Active Substance: RITUXIMAB
     Indication: GLOMERULONEPHRITIS MEMBRANOPROLIFERATIVE
  9. PREDNISONE. [Concomitant]
     Active Substance: PREDNISONE
     Indication: GLOMERULONEPHRITIS MEMBRANOPROLIFERATIVE
     Dosage: DOSAGE FORM: UNKNOWN
     Route: 048
  10. PROCYTOX (CYCLOPHOSPHAMIDE) 2000MG/VIAL [Suspect]
     Active Substance: CYCLOPHOSPHAMIDE
     Indication: GLOMERULONEPHRITIS MEMBRANOPROLIFERATIVE
     Dosage: DOSAGE FORM: INJECTION
     Route: 065
  11. FUROSEMIDE. [Suspect]
     Active Substance: FUROSEMIDE
     Dosage: DOSAGE FORM: UNKNOWN
     Route: 048
  12. AZATHIOPRINE. [Concomitant]
     Active Substance: AZATHIOPRINE
     Indication: GLOMERULONEPHRITIS MEMBRANOPROLIFERATIVE
     Dosage: DOSAGE FORM: UNKNOWN
     Route: 065
  13. BORTEZOMIB. [Suspect]
     Active Substance: BORTEZOMIB
     Indication: CRYOGLOBULINAEMIA
     Route: 065
  14. SOFOSBUVIR [Concomitant]
     Active Substance: SOFOSBUVIR
     Indication: HEPATITIS C
     Dosage: DOSAGE FORM: UNKNOWN
     Route: 065
  15. BORTEZOMIB. [Suspect]
     Active Substance: BORTEZOMIB
     Indication: GLOMERULONEPHRITIS MEMBRANOPROLIFERATIVE
     Route: 065
  16. RITUXIMAB. [Suspect]
     Active Substance: RITUXIMAB
     Indication: CRYOGLOBULINAEMIA
     Dosage: DOSAGE FORM: UNKNOWN
     Route: 042
  17. FUROSEMIDE. [Suspect]
     Active Substance: FUROSEMIDE
     Indication: OEDEMA PERIPHERAL
     Dosage: DOSAGE FORM: UNKNOWN
     Route: 048
  18. RITUXIMAB. [Concomitant]
     Active Substance: RITUXIMAB
     Indication: CRYOGLOBULINAEMIA
  19. METHYLPREDNISOLONE. [Concomitant]
     Active Substance: METHYLPREDNISOLONE
     Indication: GLOMERULONEPHRITIS MEMBRANOPROLIFERATIVE
     Dosage: DOSAGE FORM: UNKNOWN
     Route: 042
  20. SOFOSBUVIR [Concomitant]
     Active Substance: SOFOSBUVIR
     Route: 048
  21. PROCYTOX (CYCLOPHOSPHAMIDE) 2000MG/VIAL [Suspect]
     Active Substance: CYCLOPHOSPHAMIDE
     Indication: CRYOGLOBULINAEMIA
     Route: 042
  22. DEXAMETHASONE. [Suspect]
     Active Substance: DEXAMETHASONE
     Indication: CRYOGLOBULINAEMIA
     Dosage: DOSAGE FORM: UNKNOWN
     Route: 065
  23. RITUXIMAB. [Suspect]
     Active Substance: RITUXIMAB
     Indication: GLOMERULONEPHRITIS MEMBRANOPROLIFERATIVE
     Route: 065
  24. PREDNISONE. [Concomitant]
     Active Substance: PREDNISONE
     Indication: CRYOGLOBULINAEMIA
     Dosage: DOSAGE FORM: UNKNOWN
     Route: 065
  25. RITUXIMAB. [Concomitant]
     Active Substance: RITUXIMAB
     Indication: GLOMERULONEPHRITIS MEMBRANOPROLIFERATIVE
  26. METHYLPREDNISOLONE. [Concomitant]
     Active Substance: METHYLPREDNISOLONE
     Indication: CRYOGLOBULINAEMIA
     Dosage: DOSAGE FORM: UNKNOWN
     Route: 065

REACTIONS (4)
  - Drug ineffective [Unknown]
  - Nephropathy toxic [Unknown]
  - Drug resistance [Unknown]
  - Drug ineffective for unapproved indication [Unknown]
